FAERS Safety Report 5514503-X (Version None)
Quarter: 2007Q4

REPORT INFORMATION
  Report Type: 
  Country: None (occurrence: None)
  Receive Date: 20071113
  Receipt Date: 20071113
  Transmission Date: 20080405
  Serious: Yes (Other)
  Sender: FDA-Public Use
  Company Number: A0694126A

PATIENT
  Age: 52 Year
  Sex: Female

DRUGS (2)
  1. ALLI [Suspect]
     Dates: start: 20071022, end: 20071112
  2. NO CONCURRENT MEDICATIONS [Concomitant]

REACTIONS (3)
  - FAECES DISCOLOURED [None]
  - FLATULENCE [None]
  - RECTAL HAEMORRHAGE [None]
